FAERS Safety Report 11748148 (Version 2)
Quarter: 2016Q1

REPORT INFORMATION
  Report Type: Spontaneous
  Country: CA (occurrence: CA)
  Receive Date: 20151117
  Receipt Date: 20160121
  Transmission Date: 20160525
  Serious: Yes (Other)
  Sender: FDA-Public Use
  Company Number: CA-PFIZER INC-2015384009

PATIENT
  Age: 61 Year
  Sex: Male

DRUGS (5)
  1. HYDROXYCHLOROQUINE [Suspect]
     Active Substance: HYDROXYCHLOROQUINE
     Indication: RHEUMATOID ARTHRITIS
     Dosage: UNK
  2. ARAVA [Suspect]
     Active Substance: LEFLUNOMIDE
     Indication: RHEUMATOID ARTHRITIS
     Dosage: UNK
     Dates: start: 201311, end: 201401
  3. ARAVA [Suspect]
     Active Substance: LEFLUNOMIDE
     Dosage: UNK
     Dates: start: 201503, end: 201506
  4. METHOTREXATE SODIUM. [Suspect]
     Active Substance: METHOTREXATE SODIUM
     Indication: RHEUMATOID ARTHRITIS
     Dosage: 15 MG, WEEKLY
     Dates: start: 201105, end: 201207
  5. SULFASALAZINE. [Suspect]
     Active Substance: SULFASALAZINE
     Indication: RHEUMATOID ARTHRITIS
     Dosage: UNK
     Dates: start: 201308, end: 201311

REACTIONS (14)
  - Asthenia [Unknown]
  - Lethargy [Unknown]
  - Malaise [Unknown]
  - Depression [Unknown]
  - Panic attack [Unknown]
  - Renal impairment [Unknown]
  - Condition aggravated [Unknown]
  - Drug intolerance [Unknown]
  - Nausea [Unknown]
  - Dysgeusia [Unknown]
  - Rheumatoid arthritis [Unknown]
  - Anxiety [Unknown]
  - Cartilage atrophy [Unknown]
  - Drug effect incomplete [Unknown]
